FAERS Safety Report 4864757-8 (Version None)
Quarter: 2005Q4

REPORT INFORMATION
  Report Type: 
  Country: None (occurrence: None)
  Receive Date: 20051222
  Receipt Date: 20051005
  Transmission Date: 20060501
  Serious: Yes (Hospitalization, Disabling, Other)
  Sender: FDA-Public Use
  Company Number: US-MERCK-0510USA04110

PATIENT
  Age: 87 Year
  Sex: Male
  Weight: 77 kg

DRUGS (1)
  1. VIOXX [Suspect]
     Indication: OSTEOARTHRITIS
     Route: 048
     Dates: start: 20030401, end: 20040401

REACTIONS (15)
  - ACUTE PRERENAL FAILURE [None]
  - AORTIC VALVE STENOSIS [None]
  - ATRIAL FIBRILLATION [None]
  - BLOOD GLUCOSE DECREASED [None]
  - BRADYCARDIA [None]
  - CARDIAC FAILURE [None]
  - CARDIAC FAILURE CONGESTIVE [None]
  - CARDIAC MURMUR [None]
  - CARDIOMYOPATHY [None]
  - CARDIOVASCULAR DISORDER [None]
  - DYSPNOEA [None]
  - FALL [None]
  - HEART INJURY [None]
  - HYPERTENSION [None]
  - UPPER LIMB FRACTURE [None]
